FAERS Safety Report 20659492 (Version 1)
Quarter: 2022Q1

REPORT INFORMATION
  Report Type: Spontaneous
  Country: US (occurrence: None)
  Receive Date: 20220325
  Receipt Date: 20220325
  Transmission Date: 20220423
  Serious: Yes (Disabling)
  Sender: FDA-Public Use
  Company Number: None

PATIENT
  Age: 56 Year
  Sex: Female
  Weight: 119.25 kg

DRUGS (2)
  1. CEPHALEXIN [Suspect]
     Active Substance: CEPHALEXIN
     Indication: Infection
     Dosage: FREQUENCY : EVERY 6 HOURS;?
     Route: 048
     Dates: start: 20220303, end: 20220325
  2. Omnitriton Omni 4 liquid vitamin [Concomitant]

REACTIONS (3)
  - Mastectomy [None]
  - Neuropathy peripheral [None]
  - Condition aggravated [None]

NARRATIVE: CASE EVENT DATE: 20220325
